FAERS Safety Report 6702485-4 (Version None)
Quarter: 2010Q2

REPORT INFORMATION
  Report Type: 
  Country: None (occurrence: None)
  Receive Date: 20100429
  Receipt Date: 20100421
  Transmission Date: 20101027
  Serious: Yes (Life-Threatening)
  Sender: FDA-Public Use
  Company Number: B0650210A

PATIENT
  Sex: Female

DRUGS (1)
  1. AUGMENTIN '125' [Suspect]
     Indication: PYREXIA
     Dosage: 2G PER DAY
     Route: 048
     Dates: start: 20091020, end: 20091024

REACTIONS (1)
  - ANAPHYLACTIC SHOCK [None]
